FAERS Safety Report 17359668 (Version 2)
Quarter: 2020Q2

REPORT INFORMATION
  Report Type: Spontaneous
  Country: US (occurrence: US)
  Receive Date: 20200203
  Receipt Date: 20200409
  Transmission Date: 20200713
  Serious: No
  Sender: FDA-Public Use
  Company Number: US-DRREDDYS-USA/USA/20/0119094

PATIENT
  Age: 34 Year
  Sex: Male

DRUGS (3)
  1. TACROLIMUS. [Suspect]
     Active Substance: TACROLIMUS
     Indication: EOSINOPHILIC OESOPHAGITIS
     Dosage: LOW DOSE
     Route: 065
  2. CANAKINUMAB. [Concomitant]
     Active Substance: CANAKINUMAB
     Indication: EOSINOPHILIC OESOPHAGITIS
  3. METHOTREXATE. [Concomitant]
     Active Substance: METHOTREXATE
     Indication: EOSINOPHILIC OESOPHAGITIS
     Route: 065

REACTIONS (1)
  - Diarrhoea [Recovered/Resolved]
